FAERS Safety Report 8333308-8 (Version None)
Quarter: 2012Q1

REPORT INFORMATION
  Report Type: 
  Country: None (occurrence: None)
  Receive Date: 20120327
  Receipt Date: 20110314
  Transmission Date: 20120608
  Serious: Yes (Other)
  Sender: FDA-Public Use
  Company Number: PHHY2011US20797

PATIENT
  Sex: Female

DRUGS (9)
  1. GLEEVEC [Suspect]
     Indication: CHRONIC MYELOID LEUKAEMIA
     Dosage: 400 MG, QD
  2. VITAMIN B6 [Concomitant]
  3. ALLOPURINOL [Concomitant]
  4. IRON (IRON) [Concomitant]
  5. WARFARIN SODIUM [Concomitant]
  6. VITAMIN B12 [Concomitant]
  7. CALCIUM CARBONATE [Concomitant]
  8. MULTIVITAMIN ^LAPPE^ (VITAMINS NOS) [Concomitant]
  9. MAGNESIUM (MAGNESIUM) [Concomitant]

REACTIONS (3)
  - GENE MUTATION IDENTIFICATION TEST POSITIVE [None]
  - DRUG RESISTANCE [None]
  - RENAL DISORDER [None]
